FAERS Safety Report 5931138-5 (Version None)
Quarter: 2008Q4

REPORT INFORMATION
  Report Type: 
  Country: None (occurrence: None)
  Receive Date: 20081027
  Receipt Date: 20081016
  Transmission Date: 20090506
  Serious: Yes (Other)
  Sender: FDA-Public Use
  Company Number: PHHY2008JP25127

PATIENT
  Sex: Male

DRUGS (3)
  1. DIOVAN [Suspect]
     Dosage: 80 MG, QD
     Route: 048
     Dates: start: 20070501
  2. ADALAT [Concomitant]
     Dosage: 20 MG
     Route: 048
  3. URINORM [Concomitant]
     Dosage: 50 MG
     Route: 048

REACTIONS (2)
  - ERYTHROPOIESIS ABNORMAL [None]
  - NORMOCHROMIC NORMOCYTIC ANAEMIA [None]
